FAERS Safety Report 23552479 (Version 5)
Quarter: 2025Q3

REPORT INFORMATION
  Report Type: Report from Study
  Country: US (occurrence: US)
  Receive Date: 20240222
  Receipt Date: 20250803
  Transmission Date: 20251021
  Serious: Yes (Other)
  Sender: ALEXION PHARMACEUTICALS
  Company Number: US-AstraZeneca-CH-00567186A

PATIENT
  Age: 69 Year
  Sex: Female

DRUGS (1)
  1. STRENSIQ [Suspect]
     Active Substance: ASFOTASE ALFA
     Indication: Hypophosphatasia
     Route: 065

REACTIONS (16)
  - Gait disturbance [Not Recovered/Not Resolved]
  - Gout [Not Recovered/Not Resolved]
  - Pain [Not Recovered/Not Resolved]
  - Arthralgia [Unknown]
  - Insomnia [Unknown]
  - Back pain [Unknown]
  - Joint swelling [Unknown]
  - Fatigue [Unknown]
  - Myalgia [Unknown]
  - Calcinosis [Unknown]
  - Loose tooth [Unknown]
  - Pain in extremity [Unknown]
  - Grip strength decreased [Unknown]
  - Peripheral swelling [Unknown]
  - Thyroxine decreased [Unknown]
  - Eustachian tube disorder [Unknown]

NARRATIVE: CASE EVENT DATE: 20240821
